FAERS Safety Report 4388955-5 (Version None)
Quarter: 2004Q2

REPORT INFORMATION
  Report Type: 
  Country: None (occurrence: None)
  Receive Date: 20040628
  Receipt Date: 20040617
  Transmission Date: 20050107
  Serious: Yes (Other)
  Sender: FDA-Public Use
  Company Number: GBWYE843322JUN04

PATIENT
  Sex: Male

DRUGS (2)
  1. EFFEXOR [Suspect]
  2. ALCOHOL (ETHANOL, ,0) [Suspect]

REACTIONS (5)
  - ALCOHOL INTERACTION [None]
  - DIZZINESS [None]
  - EYE SWELLING [None]
  - FEELING ABNORMAL [None]
  - LOSS OF CONSCIOUSNESS [None]
